FAERS Safety Report 4429417-6 (Version None)
Quarter: 2004Q3

REPORT INFORMATION
  Report Type: 
  Country: None (occurrence: None)
  Receive Date: 20040819
  Receipt Date: 20040816
  Transmission Date: 20050211
  Serious: Yes (Hospitalization)
  Sender: FDA-Public Use
  Company Number: DE-MERCK-0408DEU00109

PATIENT
  Age: 77 Year
  Sex: Male

DRUGS (6)
  1. ACEBUTOLOL [Concomitant]
     Route: 065
  2. AMITRIPTYLINE HYDROCHLORIDE [Concomitant]
     Route: 065
  3. DICLOFENAC [Concomitant]
     Indication: PAIN
     Route: 065
     Dates: end: 20040421
  4. HYDROCHLOROTHIAZIDE [Concomitant]
     Route: 065
  5. LEVODOPA [Concomitant]
     Route: 065
  6. VIOXX [Suspect]
     Indication: PAIN
     Route: 048
     Dates: start: 20040422, end: 20040430

REACTIONS (1)
  - ANURIA [None]
